FAERS Safety Report 20974956 (Version 1)
Quarter: 2022Q2

REPORT INFORMATION
  Report Type: Spontaneous
  Country: GB (occurrence: GB)
  Receive Date: 20220617
  Receipt Date: 20220617
  Transmission Date: 20220720
  Serious: Yes (Death, Life-Threatening, Hospitalization, Other)
  Sender: FDA-Public Use
  Company Number: GB-SLATE RUN PHARMACEUTICALS-22GB001149

PATIENT

DRUGS (25)
  1. METOPROLOL SUCCINATE [Suspect]
     Active Substance: METOPROLOL SUCCINATE
     Indication: Arrhythmia
     Dosage: UNK
  2. METOPROLOL SUCCINATE [Suspect]
     Active Substance: METOPROLOL SUCCINATE
     Dosage: 25 MILLIGRAM, TID
  3. AMIODARONE [Suspect]
     Active Substance: AMIODARONE
     Indication: Atrial fibrillation
     Dosage: UNK
  4. AMIODARONE [Suspect]
     Active Substance: AMIODARONE
     Indication: Ventricular extrasystoles
     Dosage: RELOADING
  5. AMIODARONE [Suspect]
     Active Substance: AMIODARONE
     Dosage: 900 MILLIGRAM
     Route: 042
  6. AMIODARONE [Suspect]
     Active Substance: AMIODARONE
     Dosage: 300 MILLIGRAM LOADING DOSE
     Route: 042
  7. ESMOLOL [Suspect]
     Active Substance: ESMOLOL HYDROCHLORIDE
     Indication: Arrhythmia
     Dosage: UNK
  8. ESMOLOL [Suspect]
     Active Substance: ESMOLOL HYDROCHLORIDE
     Dosage: 50 MCG/ KG / MIN
  9. BECLOMETHASONE [Concomitant]
     Active Substance: BECLOMETHASONE
     Indication: Asthma
     Dosage: 2 PUFFS, BID
  10. ALBUTEROL [Concomitant]
     Active Substance: ALBUTEROL
     Indication: Asthma
     Dosage: 2 PUFFS, PRN
  11. OXYGEN [Concomitant]
     Active Substance: OXYGEN
     Indication: Pneumonia pseudomonal
     Dosage: MAXIMUM OXYGENATION
  12. OXYGEN [Concomitant]
     Active Substance: OXYGEN
     Dosage: UNK
  13. UNSPECIFIED INGREDIENT [Concomitant]
     Active Substance: UNSPECIFIED INGREDIENT
     Indication: Pneumonia pseudomonal
     Route: 042
  14. MEROPENEM [Concomitant]
     Active Substance: MEROPENEM
     Indication: Pneumonia pseudomonal
     Dosage: UNK
  15. CLARITHROMYCIN [Concomitant]
     Active Substance: CLARITHROMYCIN
     Indication: Pneumonia pseudomonal
     Dosage: UNK
  16. ASPIRIN [Concomitant]
     Active Substance: ASPIRIN
     Indication: Product used for unknown indication
  17. TICAGRELOR [Concomitant]
     Active Substance: TICAGRELOR
     Indication: Product used for unknown indication
  18. NITRIC OXIDE [Concomitant]
     Active Substance: NITRIC OXIDE
     Indication: Respiratory failure
  19. AMIKACIN [Concomitant]
     Active Substance: AMIKACIN
     Indication: Product used for unknown indication
  20. CEFTAZIDIME [Concomitant]
     Active Substance: CEFTAZIDIME
     Indication: Product used for unknown indication
  21. LINEZOLID [Concomitant]
     Active Substance: LINEZOLID
     Indication: Product used for unknown indication
  22. NOREPINEPHRINE [Concomitant]
     Active Substance: NOREPINEPHRINE
     Indication: Product used for unknown indication
     Dosage: REDUCTION IN REQUIREMENT
  23. NOREPINEPHRINE [Concomitant]
     Active Substance: NOREPINEPHRINE
     Dosage: 0.06-0.18 MICROGRAM / KG / MIN
  24. NOREPINEPHRINE [Concomitant]
     Active Substance: NOREPINEPHRINE
     Dosage: UNK
  25. ELECTROLYTE SOLUTIONS [ELECTROLYTES NOS] [Concomitant]
     Indication: Blood electrolytes abnormal

REACTIONS (18)
  - Sepsis [Fatal]
  - Cardiac arrest [Recovered/Resolved]
  - Atrioventricular block first degree [Recovering/Resolving]
  - Electrocardiogram QT prolonged [Recovered/Resolved]
  - Cardiogenic shock [Recovering/Resolving]
  - Atrial fibrillation [Recovering/Resolving]
  - Ventricular tachycardia [Recovering/Resolving]
  - Ventricular extrasystoles [Recovering/Resolving]
  - Torsade de pointes [Recovering/Resolving]
  - Ventricular fibrillation [Recovering/Resolving]
  - Sinus arrest [Recovering/Resolving]
  - Ventricular arrhythmia [Recovering/Resolving]
  - Haemodynamic instability [Recovering/Resolving]
  - Left ventricular dysfunction [Recovering/Resolving]
  - Bradycardia [Recovering/Resolving]
  - Hypotension [Recovering/Resolving]
  - Off label use [Unknown]
  - Contraindicated product administered [Unknown]
